FAERS Safety Report 5806250-1 (Version None)
Quarter: 2008Q3

REPORT INFORMATION
  Report Type: 
  Country: None (occurrence: None)
  Receive Date: 20080709
  Receipt Date: 20080709
  Transmission Date: 20090109
  Serious: Yes (Disabling)
  Sender: FDA-Public Use
  Company Number: None

PATIENT
  Sex: Male

DRUGS (1)
  1. MARCAINE HYDROCHLORIDE W/ EPINEPHRINE [Suspect]
     Indication: JOINT DISLOCATION
     Dosage: 270 ML  014
     Dates: start: 20061227, end: 20061229

REACTIONS (3)
  - BONE DISORDER [None]
  - CHONDROLYSIS [None]
  - PERIARTHRITIS [None]
